FAERS Safety Report 13116410 (Version 6)
Quarter: 2017Q2

REPORT INFORMATION
  Report Type: Report from Study
  Country: US (occurrence: US)
  Receive Date: 20170116
  Receipt Date: 20170602
  Transmission Date: 20170830
  Serious: Yes (Hospitalization, Other)
  Sender: FDA-Public Use
  Company Number: US-B.I. PHARMACEUTICALS,INC./RIDGEFIELD-2016-BI-55516BP

PATIENT
  Sex: Male

DRUGS (3)
  1. AMLODIPINE [Concomitant]
     Active Substance: AMLODIPINE BESYLATE
     Indication: PRODUCT USED FOR UNKNOWN INDICATION
     Route: 065
  2. OFEV [Suspect]
     Active Substance: NINTEDANIB
     Indication: IDIOPATHIC PULMONARY FIBROSIS
     Route: 048
     Dates: start: 20160729
  3. OFEV [Suspect]
     Active Substance: NINTEDANIB
     Route: 048

REACTIONS (24)
  - Pre-existing condition improved [Unknown]
  - Increased tendency to bruise [Unknown]
  - Dyspnoea exertional [Unknown]
  - Productive cough [Unknown]
  - Wheezing [Unknown]
  - Condition aggravated [Unknown]
  - Cardiac failure congestive [Unknown]
  - Idiopathic pulmonary fibrosis [Unknown]
  - Vomiting [Unknown]
  - Dyspnoea [Unknown]
  - Body temperature decreased [Unknown]
  - Diarrhoea [Unknown]
  - Weight decreased [Unknown]
  - Circulatory collapse [Unknown]
  - Nausea [Unknown]
  - Decreased appetite [Unknown]
  - Oxygen saturation decreased [Unknown]
  - Asthenia [Unknown]
  - Chills [Unknown]
  - Headache [Unknown]
  - Dizziness [Unknown]
  - Pain [Unknown]
  - Post-traumatic stress disorder [Unknown]
  - Drug ineffective [Unknown]
